FAERS Safety Report 11720795 (Version 1)
Quarter: 2015Q4

REPORT INFORMATION
  Report Type: Spontaneous
  Country: US (occurrence: US)
  Receive Date: 20151110
  Receipt Date: 20151110
  Transmission Date: 20160304
  Serious: No
  Sender: FDA-Public Use
  Company Number: US-PFIZER INC-2015365832

PATIENT
  Sex: Male

DRUGS (1)
  1. LYRICA [Suspect]
     Active Substance: PREGABALIN
     Dosage: UNK
     Dates: start: 20151026

REACTIONS (5)
  - Feeling drunk [Unknown]
  - Balance disorder [Unknown]
  - Somnolence [Unknown]
  - Dizziness [Unknown]
  - Vomiting [Unknown]
